FAERS Safety Report 6864015-6 (Version None)
Quarter: 2010Q3

REPORT INFORMATION
  Report Type: 
  Country: None (occurrence: None)
  Receive Date: 20100721
  Receipt Date: 20080314
  Transmission Date: 20110219
  Serious: Yes (Other)
  Sender: FDA-Public Use
  Company Number: US-PFIZER INC-2008023642

PATIENT

DRUGS (1)
  1. CHANTIX [Suspect]

REACTIONS (3)
  - ADVERSE EVENT [None]
  - GASTRITIS EROSIVE [None]
  - OESOPHAGITIS [None]
